FAERS Safety Report 15450283 (Version 1)
Quarter: 2018Q4

REPORT INFORMATION
  Report Type: Spontaneous
  Country: US (occurrence: US)
  Receive Date: 20181001
  Receipt Date: 20181001
  Transmission Date: 20190204
  Serious: No
  Sender: FDA-Public Use
  Company Number: US-PFIZER INC-2018388537

PATIENT
  Sex: Male

DRUGS (1)
  1. ADVIL [Suspect]
     Active Substance: IBUPROFEN
     Dosage: 2 DF, 4X/DAY
     Dates: start: 20180922

REACTIONS (3)
  - Back injury [Unknown]
  - Intentional overdose [Unknown]
  - Intentional product misuse [Unknown]
